FAERS Safety Report 4504426-7 (Version None)
Quarter: 2004Q4

REPORT INFORMATION
  Report Type: 
  Country: None (occurrence: None)
  Receive Date: 20041117
  Receipt Date: 20041117
  Transmission Date: 20050328
  Serious: Yes (Hospitalization)
  Sender: FDA-Public Use
  Company Number: None

PATIENT
  Age: 84 Year
  Sex: Male

DRUGS (6)
  1. DONEPEZIL HCL [Suspect]
     Indication: DEMENTIA ALZHEIMER'S TYPE
     Dosage: 10 MG QD
     Dates: start: 20040301
  2. LISINOPRIL [Concomitant]
  3. METHOCARBAMOL [Concomitant]
  4. METOPROLOL [Concomitant]
  5. PROPOXYPHENE [Concomitant]
  6. SORBITOL [Concomitant]

REACTIONS (2)
  - NAUSEA [None]
  - VOMITING [None]
